FAERS Safety Report 9840177 (Version 2)
Quarter: 2014Q1

REPORT INFORMATION
  Report Type: Spontaneous
  Country: US (occurrence: US)
  Receive Date: 20140124
  Receipt Date: 20140124
  Transmission Date: 20141002
  Serious: No
  Sender: FDA-Public Use
  Company Number: US-ASTRAZENECA-2013SE08375

PATIENT
  Age: 60 Year
  Sex: Male
  Weight: 77.1 kg

DRUGS (2)
  1. SYMBICORT PMDI [Suspect]
     Dosage: TWO TIMES A DAY
     Route: 055
  2. OTHER INHALERS [Concomitant]

REACTIONS (3)
  - Dyspnoea [Unknown]
  - Wheezing [Unknown]
  - Circumstance or information capable of leading to medication error [Not Recovered/Not Resolved]
